FAERS Safety Report 5492076-8 (Version None)
Quarter: 2007Q4

REPORT INFORMATION
  Report Type: 
  Country: None (occurrence: None)
  Receive Date: 20071015
  Receipt Date: 20070709
  Transmission Date: 20080405
  Serious: No
  Sender: FDA-Public Use
  Company Number: 2007SP002499

PATIENT
  Sex: Female

DRUGS (2)
  1. LUNESTA [Suspect]
     Dosage: ORAL
     Route: 048
  2. PREMPHASE 14/14 [Suspect]

REACTIONS (1)
  - MUSCLE SPASMS [None]
